FAERS Safety Report 23949887 (Version 1)
Quarter: 2024Q2

REPORT INFORMATION
  Report Type: Spontaneous
  Country: US (occurrence: None)
  Receive Date: 20240606
  Receipt Date: 20240606
  Transmission Date: 20240716
  Serious: Yes (Other)
  Sender: FDA-Public Use
  Company Number: None

PATIENT
  Age: 57 Year
  Sex: Male

DRUGS (1)
  1. REPATHA [Suspect]
     Active Substance: EVOLOCUMAB
     Dosage: 140 MG EVERY 2 WEEKS SUBCUTANEOUS?
     Route: 058
     Dates: start: 20240412, end: 20240606

REACTIONS (2)
  - Swelling [None]
  - Therapy cessation [None]

NARRATIVE: CASE EVENT DATE: 20240523
